FAERS Safety Report 14572057 (Version 1)
Quarter: 2018Q1

REPORT INFORMATION
  Report Type: Report from Study
  Country: DE (occurrence: DE)
  Receive Date: 20180226
  Receipt Date: 20180226
  Transmission Date: 20180509
  Serious: Yes (Other)
  Sender: FDA-Public Use
  Company Number: DE-ROCHE-1787459

PATIENT
  Age: 56 Year
  Sex: Male
  Weight: 91.2 kg

DRUGS (7)
  1. LOPERAMID [Concomitant]
     Active Substance: LOPERAMIDE
     Indication: DIARRHOEA
     Route: 065
     Dates: start: 20160330
  2. ZOPICLON [Concomitant]
     Active Substance: ZOPICLONE
     Route: 065
     Dates: start: 20160718
  3. COBIMETINIB. [Suspect]
     Active Substance: COBIMETINIB
     Indication: NEOPLASM
     Dosage: MOST RECENT DOSE: 28/JUN/2016 AT 10:24
     Route: 048
     Dates: start: 20160323
  4. METROGEL [Concomitant]
     Active Substance: METRONIDAZOLE
     Indication: DERMATITIS ACNEIFORM
     Route: 065
     Dates: start: 20160406
  5. L-THYROXIN [Concomitant]
     Active Substance: LEVOTHYROXINE SODIUM
     Indication: HYPOTHYROIDISM
     Route: 065
     Dates: start: 2013
  6. MCP [Concomitant]
     Active Substance: METOCLOPRAMIDE HYDROCHLORIDE
     Indication: NAUSEA
     Route: 065
     Dates: start: 20160330
  7. ATEZOLIZUMAB. [Suspect]
     Active Substance: ATEZOLIZUMAB
     Indication: NEOPLASM
     Dosage: MOST RECENT DOSE: 15/JUN/2016 AT 10:23
     Route: 042
     Dates: start: 20160309

REACTIONS (1)
  - Hepatitis [Not Recovered/Not Resolved]

NARRATIVE: CASE EVENT DATE: 20160629
